FAERS Safety Report 9499603 (Version 1)
Quarter: 2013Q1

REPORT INFORMATION
  Report Type: Spontaneous
  Country: US (occurrence: None)
  Receive Date: 20130107
  Receipt Date: 20130107
  Transmission Date: 20140127
  Serious: No
  Sender: FDA-Public Use
  Company Number: PHEH2012US018752

PATIENT
  Age: 36 Year
  Sex: Male

DRUGS (3)
  1. GILENYA (FTY) CAPSULE, 0.5 MG [Suspect]
     Route: 048
  2. VITAMIN D (ERGOCALCIFEROL) [Concomitant]
  3. OMEGA 3 (FISH OIL) [Concomitant]

REACTIONS (1)
  - Hypoaesthesia [None]
